FAERS Safety Report 8840059 (Version 1)
Quarter: 2012Q4

REPORT INFORMATION
  Report Type: 
  Country: US (occurrence: US)
  Receive Date: 20121015
  Receipt Date: 20121015
  Transmission Date: 20130627
  Serious: Yes (Other)
  Sender: FDA-Public Use
  Company Number: US-PFIZER INC-2012255052

PATIENT
  Age: 65 Year
  Sex: Female
  Weight: 113 kg

DRUGS (3)
  1. LYRICA [Suspect]
     Indication: PAIN IN EXTREMITY
     Dosage: 50 mg, 3x/day
     Route: 048
     Dates: start: 2009
  2. FEMARA [Suspect]
     Indication: BREAST CANCER FEMALE
     Dosage: UNK
     Dates: start: 201209
  3. ABRAXANE [Suspect]
     Indication: BREAST CANCER FEMALE
     Dosage: UNK, weekly
     Route: 042
     Dates: end: 2012

REACTIONS (6)
  - Drug ineffective [Unknown]
  - Metastases to liver [Not Recovered/Not Resolved]
  - Metastases to spleen [Not Recovered/Not Resolved]
  - Metastases to bone [Not Recovered/Not Resolved]
  - Weight fluctuation [Unknown]
  - Dry mouth [Unknown]
